FAERS Safety Report 21620785 (Version 1)
Quarter: 2022Q4

REPORT INFORMATION
  Report Type: Other
  Country: US (occurrence: None)
  Receive Date: 20221121
  Receipt Date: 20221121
  Transmission Date: 20230113
  Serious: Yes (Hospitalization)
  Sender: FDA-Public Use
  Company Number: US-ROCHE-3221265

PATIENT
  Age: 61 Year
  Sex: Male

DRUGS (3)
  1. RITUXIMAB [Suspect]
     Active Substance: RITUXIMAB
     Indication: Lymphocytic leukaemia
     Route: 041
     Dates: end: 202003
  2. IBRUTINIB [Suspect]
     Active Substance: IBRUTINIB
     Indication: Lymphocytic leukaemia
     Route: 065
  3. TOCILIZUMAB [Suspect]
     Active Substance: TOCILIZUMAB
     Indication: COVID-19
     Route: 065

REACTIONS (6)
  - COVID-19 [Unknown]
  - Acute kidney injury [Unknown]
  - Acute respiratory distress syndrome [Unknown]
  - Herpes zoster [Unknown]
  - Mononeuropathy multiplex [Unknown]
  - Off label use [Unknown]

NARRATIVE: CASE EVENT DATE: 20200323
